FAERS Safety Report 10669374 (Version 3)
Quarter: 2015Q1

REPORT INFORMATION
  Report Type: Spontaneous
  Country: FR (occurrence: FR)
  Receive Date: 20141222
  Receipt Date: 20150311
  Transmission Date: 20150720
  Serious: Yes (Disabling, Other)
  Sender: FDA-Public Use
  Company Number: FR-ALLERGAN-1426047US

PATIENT
  Age: 15 Year
  Sex: Male
  Weight: 55 kg

DRUGS (3)
  1. BOTOX [Suspect]
     Active Substance: ONABOTULINUMTOXINA
     Indication: PREVENTIVE SURGERY
     Dosage: 50 UNITS, SINGLE
  2. BOTOX [Suspect]
     Active Substance: ONABOTULINUMTOXINA
     Dosage: 350 UNITS, ONCE
  3. BOTOX [Suspect]
     Active Substance: ONABOTULINUMTOXINA
     Dosage: 50 UNK, UNK
     Dates: start: 20141210, end: 20141210

REACTIONS (7)
  - Photophobia [Unknown]
  - Mydriasis [Unknown]
  - Overdose [Unknown]
  - Asthenia [Unknown]
  - Polyneuropathy [Unknown]
  - Abasia [Recovered/Resolved]
  - Fatigue [Unknown]

NARRATIVE: CASE EVENT DATE: 201410
